FAERS Safety Report 23324888 (Version 1)
Quarter: 2023Q4

REPORT INFORMATION
  Report Type: Spontaneous
  Country: US (occurrence: None)
  Receive Date: 20231221
  Receipt Date: 20231221
  Transmission Date: 20240109
  Serious: Yes (Hospitalization)
  Sender: FDA-Public Use
  Company Number: 2023A283920

PATIENT
  Age: 42 Year
  Sex: Male

DRUGS (1)
  1. FASENRA [Suspect]
     Active Substance: BENRALIZUMAB
     Indication: Chronic spontaneous urticaria
     Route: 058
     Dates: start: 20200110, end: 20230823

REACTIONS (4)
  - Vision blurred [Unknown]
  - Hydrocephalus [Unknown]
  - Headache [Unknown]
  - Cerebral disorder [Unknown]
